FAERS Safety Report 7170579-8 (Version None)
Quarter: 2010Q4

REPORT INFORMATION
  Report Type: 
  Country: None (occurrence: None)
  Receive Date: 20101217
  Receipt Date: 20101216
  Transmission Date: 20110411
  Serious: Yes (Hospitalization)
  Sender: FDA-Public Use
  Company Number: US-EISAI INC.-E2020-08207-SPO-US

PATIENT
  Sex: Female

DRUGS (7)
  1. ARICEPT [Suspect]
     Dosage: UNKNOWN
     Route: 048
     Dates: start: 20090101, end: 20091111
  2. REBIF [Suspect]
     Indication: MULTIPLE SCLEROSIS
     Dosage: 44 MCG 3 IN 1 WEEK
     Route: 058
     Dates: start: 20090825, end: 20100417
  3. AMANTADINE HCL [Suspect]
     Indication: FATIGUE
     Dosage: UNKNOWN
     Dates: start: 20090101, end: 20091111
  4. KEPPRA [Concomitant]
     Dosage: UNKNOWN
     Dates: start: 20090501, end: 20091111
  5. KEPPRA [Concomitant]
     Dates: start: 20091111
  6. FLUOXETINE [Concomitant]
     Indication: DEPRESSION
     Dosage: UNKNOWN
  7. RISPERDAL [Concomitant]

REACTIONS (3)
  - CONVULSION [None]
  - MOTOR DYSFUNCTION [None]
  - URINARY TRACT INFECTION [None]
